FAERS Safety Report 14726641 (Version 1)
Quarter: 2018Q2

REPORT INFORMATION
  Report Type: Spontaneous
  Country: US (occurrence: US)
  Receive Date: 20180406
  Receipt Date: 20180406
  Transmission Date: 20180711
  Serious: No
  Sender: FDA-Public Use
  Company Number: US-PFIZER INC-2018140083

PATIENT

DRUGS (1)
  1. EUCRISA [Suspect]
     Active Substance: CRISABOROLE
     Indication: DERMATITIS ATOPIC
     Dosage: UNK, 2X/DAY (THIN LAYER APPLIED BID)

REACTIONS (3)
  - Condition aggravated [Recovering/Resolving]
  - Dermatitis atopic [Recovering/Resolving]
  - Hypersensitivity [Unknown]
